FAERS Safety Report 18106497 (Version 3)
Quarter: 2020Q3

REPORT INFORMATION
  Report Type: Spontaneous
  Country: TW (occurrence: TW)
  Receive Date: 20200804
  Receipt Date: 20200902
  Transmission Date: 20201103
  Serious: Yes (Hospitalization, Other)
  Sender: FDA-Public Use
  Company Number: TW-ABBVIE-20K-153-3504627-00

PATIENT
  Age: 83 Year
  Sex: Female

DRUGS (1)
  1. MAVIRET [Suspect]
     Active Substance: GLECAPREVIR\PIBRENTASVIR
     Indication: PRODUCT USED FOR UNKNOWN INDICATION
     Route: 048
     Dates: start: 20200725, end: 20200727

REACTIONS (6)
  - Blood bilirubin increased [Recovered/Resolved]
  - Hepatic cirrhosis [Recovering/Resolving]
  - Chronic hepatitis C [Recovering/Resolving]
  - Pyrexia [Recovered/Resolved]
  - Bilirubin conjugated increased [Recovered/Resolved]
  - Child-Pugh-Turcotte score abnormal [Recovering/Resolving]

NARRATIVE: CASE EVENT DATE: 2020
